FAERS Safety Report 10188656 (Version 1)
Quarter: 2014Q2

REPORT INFORMATION
  Report Type: Spontaneous
  Country: US (occurrence: US)
  Receive Date: 20140522
  Receipt Date: 20140522
  Transmission Date: 20141212
  Serious: No
  Sender: FDA-Public Use
  Company Number: US-SA-2014SA035250

PATIENT
  Age: 46 Year
  Sex: Female

DRUGS (5)
  1. LANTUS SOLOSTAR [Suspect]
     Indication: DIABETES MELLITUS
     Route: 065
  2. SOLOSTAR [Concomitant]
  3. VICTOZA [Concomitant]
  4. ALL OTHER THERAPEUTIC PRODUCTS [Concomitant]
  5. ALL OTHER THERAPEUTIC PRODUCTS [Concomitant]

REACTIONS (5)
  - Sinusitis [Unknown]
  - Tooth infection [Unknown]
  - Malaise [Unknown]
  - Blood glucose increased [Unknown]
  - Drug dose omission [Unknown]
